FAERS Safety Report 8479022-X (Version None)
Quarter: 2012Q2

REPORT INFORMATION
  Report Type: 
  Country: None (occurrence: None)
  Receive Date: 20120629
  Receipt Date: 20120622
  Transmission Date: 20120825
  Serious: Yes (Hospitalization, Disabling, Other)
  Sender: FDA-Public Use
  Company Number: US-MERCK-1203USA03426

PATIENT
  Age: 45 Year
  Sex: Female

DRUGS (4)
  1. FOSAMAX [Suspect]
     Route: 048
     Dates: start: 20090601, end: 20100101
  2. ALENDRONATE SODIUM [Suspect]
     Indication: OSTEOPOROSIS
     Route: 048
     Dates: start: 19950101
  3. FOSAMAX [Suspect]
     Indication: OSTEOPOROSIS
     Route: 048
     Dates: start: 19970701, end: 20060701
  4. BONIVA [Suspect]
     Indication: OSTEOPOROSIS
     Route: 048
     Dates: start: 20060701, end: 20090601

REACTIONS (18)
  - ANXIETY [None]
  - DEPRESSION [None]
  - OSTEOPOROSIS [None]
  - ARTHRALGIA [None]
  - BLADDER CANCER [None]
  - BONE DENSITY DECREASED [None]
  - VITAMIN D DEFICIENCY [None]
  - MULTIPLE FRACTURES [None]
  - HYPERTENSION [None]
  - TOOTH DISORDER [None]
  - FEMUR FRACTURE [None]
  - SCHIZOPHRENIA [None]
  - POOR QUALITY SLEEP [None]
  - BALANCE DISORDER [None]
  - CONSTIPATION [None]
  - ARTHROPATHY [None]
  - FALL [None]
  - BLOOD CHOLESTEROL INCREASED [None]
